FAERS Safety Report 26122132 (Version 2)
Quarter: 2025Q4

REPORT INFORMATION
  Report Type: Spontaneous
  Country: CN (occurrence: CN)
  Receive Date: 20251204
  Receipt Date: 20251208
  Transmission Date: 20260117
  Serious: Yes (Hospitalization)
  Sender: PFIZER
  Company Number: CN-PFIZER INC-PV202500140004

PATIENT
  Age: 74 Year
  Sex: Male
  Weight: 60 kg

DRUGS (2)
  1. EPIRUBICIN [Suspect]
     Active Substance: EPIRUBICIN
     Indication: Bladder cancer
     Dosage: 50 MG, 1X/DAY
     Route: 043
     Dates: start: 20251113, end: 20251113
  2. SODIUM CHLORIDE [Concomitant]
     Active Substance: SODIUM CHLORIDE
     Indication: Vehicle solution use
     Dosage: 50 ML, 1X/DAY
     Route: 043
     Dates: start: 20251113, end: 20251113

REACTIONS (1)
  - Chemical cystitis [Recovering/Resolving]

NARRATIVE: CASE EVENT DATE: 20251117
